FAERS Safety Report 5978087-4 (Version None)
Quarter: 2008Q4

REPORT INFORMATION
  Report Type: 
  Country: None (occurrence: None)
  Receive Date: 20081126
  Receipt Date: 20081113
  Transmission Date: 20090506
  Serious: Yes (Hospitalization)
  Sender: FDA-Public Use
  Company Number: 2008S1020489

PATIENT
  Age: 81 Year
  Sex: Female

DRUGS (2)
  1. OXYBUTYNIN CHLORIDE [Suspect]
     Indication: URINARY INCONTINENCE
     Dosage: 10 MG; DAILY;ORAL
     Route: 048
     Dates: start: 20081001, end: 20081005
  2. PASADEN (ETIZOLAM) [Suspect]
     Indication: INSOMNIA
     Dosage: 0.5 MG; DAILY; ORAL
     Route: 048
     Dates: start: 19950101, end: 20081108

REACTIONS (2)
  - DISORIENTATION [None]
  - HALLUCINATION [None]
